FAERS Safety Report 10479717 (Version 2)
Quarter: 2014Q3

REPORT INFORMATION
  Report Type: Report from Study
  Country: US (occurrence: US)
  Receive Date: 20140927
  Receipt Date: 20140927
  Transmission Date: 20150326
  Serious: Yes (Hospitalization, Other)
  Sender: FDA-Public Use
  Company Number: US-ALEXION PHARMACEUTICALS INC-A201203177

PATIENT
  Age: 40 Year
  Sex: Female

DRUGS (2)
  1. SOLIRIS [Suspect]
     Active Substance: ECULIZUMAB
     Indication: PAROXYSMAL NOCTURNAL HAEMOGLOBINURIA
     Dosage: UNK
     Route: 042
  2. TYLENOL [Concomitant]
     Active Substance: ACETAMINOPHEN
     Indication: PAIN

REACTIONS (18)
  - Human bite [Unknown]
  - Activities of daily living impaired [Unknown]
  - Asthenia [Unknown]
  - Bone pain [Unknown]
  - Headache [Unknown]
  - Abdominal pain [Unknown]
  - Dyspnoea [Unknown]
  - Fatigue [Unknown]
  - Pain [Unknown]
  - Back pain [Unknown]
  - Nausea [Unknown]
  - Dysphagia [Unknown]
  - Myalgia [Unknown]
  - Haemoglobin decreased [Unknown]
  - Transfusion [Unknown]
  - Anaemia [Unknown]
  - Biopsy bone marrow [Unknown]
  - Insomnia [Unknown]

NARRATIVE: CASE EVENT DATE: 20120720
